FAERS Safety Report 9640489 (Version 1)
Quarter: 2013Q4

REPORT INFORMATION
  Report Type: Spontaneous
  Country: US (occurrence: US)
  Receive Date: 20131023
  Receipt Date: 20131023
  Transmission Date: 20140711
  Serious: No
  Sender: FDA-Public Use
  Company Number: US-ABBVIE-13P-163-1092974-00

PATIENT
  Age: 44 Year
  Sex: Female
  Weight: 56.75 kg

DRUGS (4)
  1. LUPRON DEPOT [Suspect]
     Indication: ENDOMETRIOSIS
     Dates: start: 201302
  2. LUPRON DEPOT [Suspect]
     Indication: PELVIC PAIN
  3. AGESTIN [Concomitant]
     Indication: HORMONE REPLACEMENT THERAPY
     Dates: start: 201302
  4. ZOFRAN [Concomitant]
     Indication: NAUSEA

REACTIONS (1)
  - Pelvic pain [Not Recovered/Not Resolved]
